FAERS Safety Report 11882339 (Version 1)
Quarter: 2015Q4

REPORT INFORMATION
  Report Type: Spontaneous
  Country: US (occurrence: US)
  Receive Date: 20151231
  Receipt Date: 20151231
  Transmission Date: 20160305
  Serious: Yes (Other)
  Sender: FDA-Public Use
  Company Number: US-AMGEN-USASP2015139709

PATIENT
  Age: 61 Year
  Sex: Female

DRUGS (1)
  1. PROLIA [Suspect]
     Active Substance: DENOSUMAB
     Indication: PRODUCT USED FOR UNKNOWN INDICATION
     Dosage: UNK
     Route: 065
     Dates: start: 201510

REACTIONS (13)
  - Dyspnoea [Unknown]
  - Mouth ulceration [Unknown]
  - Gastric bypass [Unknown]
  - Pyrexia [Recovered/Resolved]
  - Chills [Unknown]
  - Vulvovaginal rash [Unknown]
  - Blood calcium decreased [Unknown]
  - Cystitis [Unknown]
  - Vitamin D decreased [Unknown]
  - Myalgia [Unknown]
  - Back pain [Unknown]
  - Paraesthesia [Unknown]
  - Arthralgia [Unknown]
